FAERS Safety Report 9062498 (Version 3)
Quarter: 2016Q1

REPORT INFORMATION
  Report Type: Report from Study
  Country: US (occurrence: US)
  Receive Date: 20130213
  Receipt Date: 20160125
  Transmission Date: 20160526
  Serious: Yes (Hospitalization)
  Sender: FDA-Public Use
  Company Number: US-JNJFOC-20130206124

PATIENT
  Age: 5 Year
  Sex: Male
  Weight: 17.3 kg

DRUGS (6)
  1. AZATHIOPRINE. [Suspect]
     Active Substance: AZATHIOPRINE
     Indication: PRODUCT USED FOR UNKNOWN INDICATION
  2. PROBIOTICS [Concomitant]
     Active Substance: PROBIOTICS NOS
  3. DEXTRIN [Concomitant]
     Active Substance: ICODEXTRIN
  4. REMICADE [Suspect]
     Active Substance: INFLIXIMAB
     Indication: INFLAMMATORY BOWEL DISEASE
     Route: 042
     Dates: start: 20111209
  5. MULTIVIT [Concomitant]
     Active Substance: VITAMINS
  6. LANSOPRAZOLE. [Concomitant]
     Active Substance: LANSOPRAZOLE

REACTIONS (1)
  - Croup infectious [Recovered/Resolved]

NARRATIVE: CASE EVENT DATE: 20121018
